FAERS Safety Report 9256273 (Version 1)
Quarter: 2013Q2

REPORT INFORMATION
  Report Type: Spontaneous
  Country: US (occurrence: US)
  Receive Date: 20130425
  Receipt Date: 20130425
  Transmission Date: 20140414
  Serious: No
  Sender: FDA-Public Use
  Company Number: US-AMGEN-USASP2012052817

PATIENT
  Age: 74 Year
  Sex: Female

DRUGS (7)
  1. NPLATE [Suspect]
     Indication: IDIOPATHIC THROMBOCYTOPENIC PURPURA
     Dosage: UNK
     Dates: start: 20111222, end: 20120105
  2. NPLATE [Suspect]
     Indication: LEUKAEMIA
  3. ULORIC [Concomitant]
     Dosage: UNK
  4. ACYCLOVIR                          /00587301/ [Concomitant]
     Dosage: UNK
  5. DILTIAZEM [Concomitant]
     Dosage: UNK
  6. LEVOTHYROXINE [Concomitant]
     Dosage: UNK
  7. VICODIN [Concomitant]
     Dosage: UNK

REACTIONS (2)
  - Coccidioidomycosis [Not Recovered/Not Resolved]
  - Local swelling [Recovered/Resolved]
